FAERS Safety Report 9098041 (Version 2)
Quarter: 2013Q1

REPORT INFORMATION
  Report Type: Report from Study
  Country: PL (occurrence: PL)
  Receive Date: 20130212
  Receipt Date: 20130220
  Transmission Date: 20140127
  Serious: Yes (Death, Other)
  Sender: FDA-Public Use
  Company Number: PL-ROCHE-1186408

PATIENT
  Age: 46 Year
  Sex: Female

DRUGS (3)
  1. TRASTUZUMAB [Suspect]
     Indication: NEOPLASM MALIGNANT
     Route: 065
  2. CAPECITABINE [Suspect]
     Indication: NEOPLASM MALIGNANT
     Route: 065
  3. LAPATINIB [Suspect]
     Indication: NEOPLASM MALIGNANT
     Route: 065

REACTIONS (7)
  - Disease progression [Fatal]
  - Metastases to liver [Unknown]
  - Ascites [Unknown]
  - Metastases to liver [Unknown]
  - Dyspnoea [Unknown]
  - Hyperbilirubinaemia [Unknown]
  - Disease progression [Unknown]
